FAERS Safety Report 6635606-2 (Version None)
Quarter: 2010Q1

REPORT INFORMATION
  Report Type: 
  Country: None (occurrence: None)
  Receive Date: 20100311
  Receipt Date: 20100311
  Transmission Date: 20100710
  Serious: Yes (Hospitalization, Other)
  Sender: FDA-Public Use
  Company Number: None

PATIENT
  Age: 51 Year
  Sex: Female
  Weight: 86.1834 kg

DRUGS (1)
  1. CREAM (HORMONE) 4 SEPARATE BIO-IDENTICAL HORMONES COMPOUNDING [Suspect]
     Indication: HORMONE LEVEL ABNORMAL
     Dosage: 1 ML. DAILY
     Dates: start: 20100101, end: 20100201

REACTIONS (2)
  - PRODUCT QUALITY ISSUE [None]
  - UNEVALUABLE EVENT [None]
